FAERS Safety Report 4610897-8 (Version None)
Quarter: 2005Q2

REPORT INFORMATION
  Report Type: 
  Country: None (occurrence: None)
  Receive Date: 20050301
  Receipt Date: 20041117
  Transmission Date: 20051028
  Serious: Yes (Hospitalization)
  Sender: FDA-Public Use
  Company Number: 140735USA

PATIENT
  Age: 53 Year
  Sex: Male

DRUGS (1)
  1. TORSEMIDE [Suspect]
     Dates: start: 20040401, end: 20040601

REACTIONS (3)
  - CARDIAC FAILURE CONGESTIVE [None]
  - DRUG INEFFECTIVE [None]
  - FLUID RETENTION [None]
